FAERS Safety Report 7470486-7 (Version None)
Quarter: 2011Q2

REPORT INFORMATION
  Report Type: 
  Country: None (occurrence: None)
  Receive Date: 20110510
  Receipt Date: 20110505
  Transmission Date: 20111010
  Serious: Yes (Other)
  Sender: FDA-Public Use
  Company Number: FR-MERCK-1105FRA00027

PATIENT
  Age: 66 Year
  Sex: Male

DRUGS (2)
  1. IFOSFAMIDE [Suspect]
     Indication: SARCOMA
     Route: 065
  2. EMEND [Suspect]
     Route: 048

REACTIONS (1)
  - ENCEPHALOPATHY [None]
